FAERS Safety Report 14753529 (Version 1)
Quarter: 2018Q2

REPORT INFORMATION
  Report Type: Spontaneous
  Country: AU (occurrence: AU)
  Receive Date: 20180412
  Receipt Date: 20180412
  Transmission Date: 20180711
  Serious: Yes (Hospitalization)
  Sender: FDA-Public Use
  Company Number: AU-AMGEN-AUSSP2018046582

PATIENT
  Age: 76 Year
  Sex: Female

DRUGS (3)
  1. PROLIA [Suspect]
     Active Substance: DENOSUMAB
     Indication: OSTEOPOROSIS
     Dosage: UNK
     Route: 065
     Dates: start: 20180209
  2. CALTRATE [Concomitant]
     Active Substance: CALCIUM CARBONATE
     Dosage: UNK
  3. VITAMIN D [Concomitant]
     Active Substance: CHOLECALCIFEROL
     Dosage: UNK

REACTIONS (10)
  - Dizziness [Unknown]
  - Nausea [Unknown]
  - Groin pain [Recovering/Resolving]
  - Asthenia [Not Recovered/Not Resolved]
  - Adnexa uteri pain [Recovering/Resolving]
  - Back pain [Recovering/Resolving]
  - Vomiting [Unknown]
  - Gait disturbance [Not Recovered/Not Resolved]
  - Arthralgia [Recovering/Resolving]
  - Dysstasia [Not Recovered/Not Resolved]

NARRATIVE: CASE EVENT DATE: 2018
